FAERS Safety Report 22373012 (Version 1)
Quarter: 2023Q2

REPORT INFORMATION
  Report Type: Spontaneous
  Country: US (occurrence: None)
  Receive Date: 20230526
  Receipt Date: 20230526
  Transmission Date: 20230722
  Serious: No
  Sender: FDA-Public Use
  Company Number: None

PATIENT
  Sex: Female

DRUGS (1)
  1. CIBINQO [Suspect]
     Active Substance: ABROCITINIB
     Dosage: 100MG DAILY ORAL?
     Route: 048
     Dates: start: 20230225, end: 20230401

REACTIONS (4)
  - Oral disorder [None]
  - Swollen tongue [None]
  - Epistaxis [None]
  - Therapy cessation [None]
